FAERS Safety Report 9828752 (Version 3)
Quarter: 2014Q1

REPORT INFORMATION
  Report Type: Report from Study
  Country: US (occurrence: US)
  Receive Date: 20140117
  Receipt Date: 20140220
  Transmission Date: 20141002
  Serious: Yes (Hospitalization)
  Sender: FDA-Public Use
  Company Number: US-GILEAD-2013-0086822

PATIENT
  Age: 60 Year
  Sex: Male
  Weight: 68.4 kg

DRUGS (14)
  1. SOFOSBUVIR [Suspect]
     Indication: HEPATITIS C
     Dosage: 400 MG, QD
     Route: 048
     Dates: start: 20130905, end: 20131028
  2. SOFOSBUVIR [Suspect]
     Dosage: 400 MG, QD
     Route: 048
     Dates: start: 2013
  3. SOFOSBUVIR [Suspect]
     Dosage: 400 MG, QD
     Route: 048
  4. RIBAVIRIN [Suspect]
     Indication: HEPATITIS C
     Dosage: 1000 MG, QD
     Route: 048
     Dates: start: 20130905, end: 20131028
  5. RIBAVIRIN [Suspect]
     Dosage: 800 MG, QD
     Route: 048
     Dates: start: 20111024
  6. RIBAVIRIN [Suspect]
     Dosage: UNK MG, QD
     Route: 048
     Dates: start: 2013
  7. RIBAVIRIN [Suspect]
     Dosage: UNK MG, QD
     Route: 048
  8. PROGRAF [Concomitant]
     Dosage: UNK
     Dates: start: 20130314
  9. PROTONIX [Concomitant]
     Dosage: UNK
     Dates: start: 2011
  10. PROZAC [Concomitant]
     Dosage: UNK
     Dates: start: 2011
  11. LOMOTIL                            /00034001/ [Concomitant]
     Dosage: UNK
     Dates: start: 2013
  12. CELEXA                             /00582602/ [Concomitant]
     Dosage: UNK
     Dates: start: 2011
  13. ZOFRAN                             /00955301/ [Concomitant]
     Dosage: UNK
     Dates: start: 2013
  14. SINEQUAN [Concomitant]
     Dosage: UNK
     Dates: start: 2011

REACTIONS (2)
  - Liver function test abnormal [Not Recovered/Not Resolved]
  - Jaundice [Not Recovered/Not Resolved]
